FAERS Safety Report 5313880-2 (Version None)
Quarter: 2007Q2

REPORT INFORMATION
  Report Type: 
  Country: None (occurrence: None)
  Receive Date: 20070501
  Receipt Date: 20070424
  Transmission Date: 20071010
  Serious: Yes (Death, Life-Threatening, Other)
  Sender: FDA-Public Use
  Company Number: HQWYE830325APR07

PATIENT
  Sex: Male
  Weight: 53 kg

DRUGS (9)
  1. MYLOTARG [Suspect]
     Indication: ACUTE MYELOID LEUKAEMIA
     Route: 041
     Dates: start: 20070220, end: 20070220
  2. MYLOTARG [Suspect]
     Route: 041
     Dates: start: 20070306, end: 20070306
  3. BAKTAR [Concomitant]
     Indication: PROPHYLAXIS
     Route: 048
     Dates: start: 20060720, end: 20070309
  4. SIGMART [Concomitant]
     Route: 048
     Dates: start: 20070218, end: 20070309
  5. FRANDOL [Concomitant]
     Route: 065
     Dates: start: 20061004, end: 20070309
  6. HERBESSER [Concomitant]
     Route: 048
     Dates: start: 20061005, end: 20070309
  7. PURSENNID [Concomitant]
     Route: 048
     Dates: start: 20060802, end: 20070309
  8. GASTER [Concomitant]
     Indication: PROPHYLAXIS
     Route: 048
     Dates: start: 20060728, end: 20070309
  9. DIFLUCAN [Concomitant]
     Indication: PROPHYLAXIS
     Route: 048
     Dates: start: 20060720, end: 20070309

REACTIONS (7)
  - HAEMATOCRIT DECREASED [None]
  - HAEMOGLOBIN DECREASED [None]
  - NEUTROPHIL COUNT DECREASED [None]
  - PLATELET COUNT DECREASED [None]
  - PNEUMONIA [None]
  - PYREXIA [None]
  - RED BLOOD CELL COUNT DECREASED [None]
